FAERS Safety Report 15805450 (Version 1)
Quarter: 2019Q1

REPORT INFORMATION
  Report Type: Spontaneous
  Country: US (occurrence: US)
  Receive Date: 20190110
  Receipt Date: 20190110
  Transmission Date: 20190417
  Serious: Yes (Other)
  Sender: FDA-Public Use
  Company Number: US-AUROBINDO-AUR-APL-2019-000170

PATIENT
  Age: 81 Year
  Sex: Male

DRUGS (13)
  1. LINEZOLID. [Concomitant]
     Active Substance: LINEZOLID
     Indication: BACTERIAL INFECTION
     Dosage: 600 MILLIGRAM, UNK
     Route: 048
  2. TIGECYCLINE. [Concomitant]
     Active Substance: TIGECYCLINE
     Indication: BACTERIAL INFECTION
     Dosage: 50 MILLIGRAM, DAILY
     Route: 042
  3. TIGECYCLINE. [Concomitant]
     Active Substance: TIGECYCLINE
     Indication: EVIDENCE BASED TREATMENT
  4. LINEZOLID. [Concomitant]
     Active Substance: LINEZOLID
     Indication: EVIDENCE BASED TREATMENT
  5. CLOFAZIMINE [Concomitant]
     Active Substance: CLOFAZIMINE
     Indication: EVIDENCE BASED TREATMENT
     Dosage: 50 MILLIGRAM, DAILY
     Route: 048
  6. CLOFAZIMINE [Concomitant]
     Active Substance: CLOFAZIMINE
     Indication: BACTERIAL INFECTION
  7. TEDIZOLID [Concomitant]
     Active Substance: TEDIZOLID
     Indication: BACTERIAL INFECTION
     Dosage: UNK
     Route: 048
  8. AZITHROMYCIN ANHYDROUS. [Suspect]
     Active Substance: AZITHROMYCIN ANHYDROUS
     Indication: EVIDENCE BASED TREATMENT
  9. AMIKACIN. [Suspect]
     Active Substance: AMIKACIN
     Indication: EVIDENCE BASED TREATMENT
     Dosage: 600 MILLIGRAM (EVERY 48?72 H DOSED AFTER DIALYSIS)
     Route: 042
  10. AMIKACIN. [Suspect]
     Active Substance: AMIKACIN
     Indication: BACTERIAL INFECTION
  11. ACETYLCYSTEINE. [Concomitant]
     Active Substance: ACETYLCYSTEINE
     Indication: EVIDENCE BASED TREATMENT
     Dosage: UNK
     Route: 065
  12. AZITHROMYCIN ANHYDROUS. [Suspect]
     Active Substance: AZITHROMYCIN ANHYDROUS
     Indication: BACTERIAL INFECTION
     Dosage: 500 MILLIGRAM, DAILY
     Route: 048
  13. ACETYLCYSTEINE. [Concomitant]
     Active Substance: ACETYLCYSTEINE
     Indication: BACTERIAL INFECTION

REACTIONS (4)
  - Hypoacusis [Recovering/Resolving]
  - Metabolic acidosis [Recovered/Resolved]
  - Hyperkalaemia [Recovered/Resolved]
  - Renal injury [Recovered/Resolved]
